FAERS Safety Report 8727948 (Version 3)
Quarter: 2012Q4

REPORT INFORMATION
  Report Type: 
  Country: PR (occurrence: PR)
  Receive Date: 20120816
  Receipt Date: 20121018
  Transmission Date: 20130627
  Serious: Yes (Other)
  Sender: FDA-Public Use
  Company Number: PR-ABBOTT-12P-131-0967199-00

PATIENT
  Age: 22 None
  Sex: Male
  Weight: 49.94 kg

DRUGS (7)
  1. HUMIRA [Suspect]
     Indication: CROHN^S DISEASE
     Route: 058
     Dates: end: 20120808
  2. HUMIRA [Suspect]
     Route: 058
     Dates: start: 20120823
  3. IMURAN [Concomitant]
     Indication: CROHN^S DISEASE
     Dosage: 2.5 tablets daily
     Route: 048
  4. IMODIUM [Concomitant]
     Indication: CROHN^S DISEASE
     Route: 048
  5. IMODIUM [Concomitant]
     Indication: ILEOSTOMY
  6. COREG [Concomitant]
     Indication: CONGESTIVE CARDIOMYOPATHY
     Route: 048
  7. VASOTEC [Concomitant]
     Indication: CONGESTIVE CARDIOMYOPATHY
     Route: 048

REACTIONS (3)
  - Inguinal mass [Recovered/Resolved]
  - Subcutaneous abscess [Recovered/Resolved]
  - Abscess limb [Recovered/Resolved]
